FAERS Safety Report 13024497 (Version 8)
Quarter: 2017Q4

REPORT INFORMATION
  Report Type: Report from Study
  Country: US (occurrence: US)
  Receive Date: 20161213
  Receipt Date: 20171018
  Transmission Date: 20180320
  Serious: Yes (Death, Hospitalization)
  Sender: FDA-Public Use
  Company Number: US-ACTELION-A-US2016-146721

PATIENT
  Age: 69 Year
  Sex: Female
  Weight: 48.98 kg

DRUGS (4)
  1. VELETRI [Suspect]
     Active Substance: EPOPROSTENOL
     Dosage: UNK
     Route: 042
  2. VELETRI [Suspect]
     Active Substance: EPOPROSTENOL
     Indication: PULMONARY HYPERTENSION
     Dosage: 32 NG/KG, PER MIN
     Route: 042
     Dates: start: 20160127
  3. OPSUMIT [Suspect]
     Active Substance: MACITENTAN
     Indication: PULMONARY HYPERTENSION
     Dosage: 10 MG, QD
     Route: 048
     Dates: start: 20160425
  4. OXYGEN. [Concomitant]
     Active Substance: OXYGEN

REACTIONS (14)
  - Pulmonary arterial hypertension [Fatal]
  - Heart rate increased [Unknown]
  - Nasopharyngitis [Unknown]
  - Abdominal discomfort [Unknown]
  - Sinusitis [Unknown]
  - Oedema peripheral [Unknown]
  - Catheter site erythema [Recovered/Resolved]
  - Hypoacusis [Unknown]
  - Feeling abnormal [Not Recovered/Not Resolved]
  - Dyspnoea [Unknown]
  - Respiratory failure [Fatal]
  - Lung disorder [Unknown]
  - Bronchitis [Unknown]
  - Fatigue [Unknown]
